FAERS Safety Report 11397263 (Version 2)
Quarter: 2015Q3

REPORT INFORMATION
  Report Type: Spontaneous
  Country: CO (occurrence: CO)
  Receive Date: 20150819
  Receipt Date: 20150901
  Transmission Date: 20151125
  Serious: Yes (Hospitalization, Other)
  Sender: FDA-Public Use
  Company Number: CO-BAYER-2015-402607

PATIENT
  Age: 79 Year
  Sex: Female

DRUGS (9)
  1. ATORVASTATIN CALCIUM. [Concomitant]
     Active Substance: ATORVASTATIN CALCIUM
  2. LOSARTAN. [Concomitant]
     Active Substance: LOSARTAN
  3. BETALOC [Concomitant]
     Active Substance: METOPROLOL TARTRATE
  4. CARDIOASPIRINA? 100MG TABLET [Suspect]
     Active Substance: ASPIRIN
     Dosage: UNK
     Dates: start: 20150715
  5. DEFLAZACORT [Concomitant]
     Active Substance: DEFLAZACORT
  6. SULFASALAZINE DELAYED-RELEASE [Concomitant]
     Active Substance: SULFASALAZINE
  7. CARDIOASPIRINA? 100MG TABLET [Suspect]
     Active Substance: ASPIRIN
     Dosage: UNK
     Dates: start: 20150618, end: 20150623
  8. XARELTO [Suspect]
     Active Substance: RIVAROXABAN
     Dosage: 20 MG, UNK
     Dates: start: 20150813
  9. EUTIROX [Concomitant]
     Active Substance: LEVOTHYROXINE SODIUM

REACTIONS (7)
  - Cutaneous vasculitis [None]
  - Pyelonephritis [Unknown]
  - Headache [Unknown]
  - Ocular hyperaemia [Unknown]
  - Gastritis [Recovered/Resolved]
  - Inflammation [None]
  - Atrial fibrillation [None]

NARRATIVE: CASE EVENT DATE: 20150618
